FAERS Safety Report 21016176 (Version 1)
Quarter: 2022Q2

REPORT INFORMATION
  Report Type: Other
  Country: US (occurrence: US)
  Receive Date: 20220628
  Receipt Date: 20220628
  Transmission Date: 20220720
  Serious: Yes (Hospitalization)
  Sender: FDA-Public Use
  Company Number: US-INTERCEPT-PM2022001228

PATIENT
  Sex: Female

DRUGS (1)
  1. OCALIVA [Suspect]
     Active Substance: OBETICHOLIC ACID
     Indication: Primary biliary cholangitis
     Dosage: 5 MILLIGRAM, QD
     Route: 048
     Dates: start: 20170613

REACTIONS (8)
  - Swollen tongue [Unknown]
  - Tongue discomfort [Unknown]
  - Oral discomfort [Unknown]
  - Dyspepsia [Unknown]
  - Chromaturia [Recovered/Resolved]
  - Yellow skin [Unknown]
  - Dehydration [Unknown]
  - Ocular icterus [Unknown]
